FAERS Safety Report 4712014-2 (Version None)
Quarter: 2005Q2

REPORT INFORMATION
  Report Type: 
  Country: None (occurrence: None)
  Receive Date: 20050629
  Receipt Date: 20050411
  Transmission Date: 20051028
  Serious: No
  Sender: FDA-Public Use
  Company Number: 05P-163-0297029-00

PATIENT
  Age: 61 Year
  Sex: Female
  Weight: 113 kg

DRUGS (7)
  1. HUMIRA [Suspect]
     Indication: RHEUMATOID ARTHRITIS
     Dosage: 40 MG, 1 IN 10 D, SUBCUTANEOUS
     Route: 058
     Dates: start: 20040222, end: 20040506
  2. HUMIRA [Suspect]
     Indication: RHEUMATOID ARTHRITIS
     Dosage: 40 MG, 1 IN 10 D, SUBCUTANEOUS
     Route: 058
     Dates: start: 20040506, end: 20050401
  3. HYDROCHLOROTHIAZIDE [Concomitant]
  4. PRAVASTATIN SODIUM [Concomitant]
  5. ATENOLOL [Concomitant]
  6. AMLODIPINE BESYLATE [Concomitant]
  7. FLUOXETINE HCL [Concomitant]

REACTIONS (4)
  - CYST [None]
  - DYSPNOEA [None]
  - INFLUENZA [None]
  - SINUSITIS [None]
